FAERS Safety Report 10091318 (Version 2)
Quarter: 2014Q2

REPORT INFORMATION
  Report Type: Spontaneous
  Country: US (occurrence: US)
  Receive Date: 20140421
  Receipt Date: 20140421
  Transmission Date: 20141212
  Serious: No
  Sender: FDA-Public Use
  Company Number: US-GILEAD-2013-0067493

PATIENT
  Sex: Male

DRUGS (4)
  1. LETAIRIS [Suspect]
     Indication: PULMONARY HYPERTENSION
     Dosage: 5 MG, QD
     Route: 048
     Dates: start: 20110921
  2. LETAIRIS [Suspect]
     Indication: SYSTEMIC SCLEROSIS
  3. REMODULIN [Concomitant]
  4. ADCIRCA [Concomitant]

REACTIONS (1)
  - Nasopharyngitis [Unknown]
